FAERS Safety Report 11204705 (Version 1)
Quarter: 2015Q2

REPORT INFORMATION
  Report Type: Report from Study
  Country: VE (occurrence: VE)
  Receive Date: 20150622
  Receipt Date: 20150622
  Transmission Date: 20150821
  Serious: Yes (Other)
  Sender: FDA-Public Use
  Company Number: VE-ABBVIE-15K-178-1410380-00

PATIENT
  Age: 63 Year
  Sex: Female
  Weight: 80 kg

DRUGS (1)
  1. HUMIRA [Suspect]
     Active Substance: ADALIMUMAB
     Indication: PSORIASIS
     Route: 058
     Dates: start: 20100924, end: 201503

REACTIONS (3)
  - Hepatotoxicity [Recovering/Resolving]
  - Bone pain [Recovering/Resolving]
  - Tuberculin test positive [Recovering/Resolving]

NARRATIVE: CASE EVENT DATE: 201503
